FAERS Safety Report 11787728 (Version 3)
Quarter: 2016Q1

REPORT INFORMATION
  Report Type: Spontaneous
  Country: GB (occurrence: GB)
  Receive Date: 20151130
  Receipt Date: 20160104
  Transmission Date: 20160525
  Serious: Yes (Congenital Anomaly)
  Sender: FDA-Public Use
  Company Number: GB-TEVA-610906ACC

PATIENT
  Weight: 2.75 kg

DRUGS (11)
  1. TRAMADOL. [Suspect]
     Active Substance: TRAMADOL
     Indication: FOETAL EXPOSURE DURING PREGNANCY
     Dosage: AS NEEDED
     Route: 064
  2. CERELLE [Suspect]
     Active Substance: DESOGESTREL
     Indication: POLYCYSTIC OVARIES
     Dosage: 1 DOSAGE FORMS DAILY;
     Route: 064
  3. CERELLE [Suspect]
     Active Substance: DESOGESTREL
     Indication: FOETAL EXPOSURE DURING PREGNANCY
  4. AMLODIPINE [Suspect]
     Active Substance: AMLODIPINE BESYLATE
     Indication: HYPERTENSION
     Dosage: 5 MILLIGRAM DAILY;
     Route: 064
  5. AMLODIPINE [Suspect]
     Active Substance: AMLODIPINE BESYLATE
     Indication: FOETAL EXPOSURE DURING PREGNANCY
  6. MIRTAZAPINE. [Suspect]
     Active Substance: MIRTAZAPINE
     Indication: DEPRESSION
     Dosage: 15 MILLIGRAM DAILY;
     Route: 064
  7. SODIUM VALPROATE [Concomitant]
     Active Substance: VALPROATE SODIUM
     Indication: HYPERTENSION
     Route: 064
  8. MIRTAZAPINE. [Suspect]
     Active Substance: MIRTAZAPINE
     Indication: FOETAL EXPOSURE DURING PREGNANCY
  9. RAMIPRIL. [Suspect]
     Active Substance: RAMIPRIL
     Indication: HYPERTENSION
     Dosage: 5 MILLIGRAM DAILY;
     Route: 064
  10. BENZODIAZEPINES NOS [Concomitant]
     Active Substance: BENZODIAZEPINE
  11. RAMIPRIL. [Suspect]
     Active Substance: RAMIPRIL
     Indication: FOETAL EXPOSURE DURING PREGNANCY

REACTIONS (2)
  - Maternal exposure during pregnancy [Not Recovered/Not Resolved]
  - Cleft lip and palate [Not Recovered/Not Resolved]

NARRATIVE: CASE EVENT DATE: 20151109
